FAERS Safety Report 25587346 (Version 1)
Quarter: 2025Q3

REPORT INFORMATION
  Report Type: Spontaneous
  Country: JP (occurrence: JP)
  Receive Date: 20250721
  Receipt Date: 20250721
  Transmission Date: 20251021
  Serious: Yes (Other)
  Sender: PFIZER
  Company Number: JP-PFIZER INC-PV202500084317

PATIENT
  Age: 77 Year
  Sex: Female

DRUGS (4)
  1. LORLATINIB [Suspect]
     Active Substance: LORLATINIB
     Dosage: 100 MG, DAILY
  2. LORLATINIB [Suspect]
     Active Substance: LORLATINIB
     Dosage: 75 MG, DAILY
  3. CARBOPLATIN [Concomitant]
     Active Substance: CARBOPLATIN
  4. PEMETREXED [Concomitant]
     Active Substance: PEMETREXED

REACTIONS (1)
  - Cardiac dysfunction [Recovering/Resolving]
